FAERS Safety Report 11923382 (Version 1)
Quarter: 2016Q1

REPORT INFORMATION
  Report Type: Spontaneous
  Country: CN (occurrence: CN)
  Receive Date: 20160118
  Receipt Date: 20160118
  Transmission Date: 20160526
  Serious: Yes (Hospitalization)
  Sender: FDA-Public Use
  Company Number: CN-ACCORD-037001

PATIENT
  Age: 34 Year
  Sex: Male

DRUGS (2)
  1. PACLITAXEL/PACLITAXEL LIPOSOME [Suspect]
     Active Substance: PACLITAXEL
     Indication: NON-SMALL CELL LUNG CANCER
     Dosage: RECEIVED ON DAY 1 OF EACH 2-WEEK CYCLE, AS ADJUVANT CHEMOTHERAPY (SIX CYCLES)
  2. DICYCLOPLATIN [Suspect]
     Active Substance: INVESTIGATIONAL PRODUCT
     Indication: NON-SMALL CELL LUNG CANCER
     Dosage: RECEIVED ON DAY 1 OF EACH 2-WEEK CYCLE, AS ADJUVANT CHEMOTHERAPY (SIX CYCLES)

REACTIONS (2)
  - Gastrointestinal disorder [Unknown]
  - Bone marrow failure [Unknown]
